FAERS Safety Report 9880727 (Version 1)
Quarter: 2014Q1

REPORT INFORMATION
  Report Type: Spontaneous
  Country: US (occurrence: None)
  Receive Date: 20140206
  Receipt Date: 20140206
  Transmission Date: 20141002
  Serious: Yes (Other)
  Sender: FDA-Public Use
  Company Number: None

PATIENT
  Age: 71 None
  Sex: Male

DRUGS (1)
  1. STIVARGA 40 MG BAYER [Suspect]
     Indication: COLON CANCER
     Route: 048
     Dates: start: 20140117, end: 20140122

REACTIONS (6)
  - Fatigue [None]
  - Feeling abnormal [None]
  - Skin fissures [None]
  - Skin exfoliation [None]
  - Pain [None]
  - Urinary retention [None]
